FAERS Safety Report 9857872 (Version 2)
Quarter: 2014Q1

REPORT INFORMATION
  Report Type: Spontaneous
  Country: FR (occurrence: FR)
  Receive Date: 20140131
  Receipt Date: 20140131
  Transmission Date: 20141002
  Serious: Yes (Hospitalization)
  Sender: FDA-Public Use
  Company Number: FR-AMGEN-FRASP2013087446

PATIENT
  Age: 72 Year
  Sex: Male
  Weight: 54 kg

DRUGS (2)
  1. VECTIBIX [Suspect]
     Indication: INTESTINAL ADENOCARCINOMA
     Dosage: 325 MG, EVERY 14 DAYS
     Route: 042
     Dates: start: 20131001
  2. ERBITUX [Suspect]
     Indication: PRODUCT USED FOR UNKNOWN INDICATION
     Dosage: UNK
     Route: 065

REACTIONS (2)
  - Wrong technique in drug usage process [Unknown]
  - Rash [Not Recovered/Not Resolved]
